FAERS Safety Report 22084325 (Version 3)
Quarter: 2023Q2

REPORT INFORMATION
  Report Type: Report from Study
  Country: US (occurrence: US)
  Receive Date: 20230310
  Receipt Date: 20230612
  Transmission Date: 20230721
  Serious: Yes (Other)
  Sender: FDA-Public Use
  Company Number: US-ABBVIE-4333960

PATIENT
  Age: 71 Year
  Sex: Female

DRUGS (1)
  1. HUMIRA [Suspect]
     Active Substance: ADALIMUMAB
     Indication: Rheumatoid arthritis
     Route: 058
     Dates: end: 2023

REACTIONS (8)
  - Intervertebral disc protrusion [Unknown]
  - Pneumonia [Unknown]
  - Influenza [Unknown]
  - Procedural pain [Unknown]
  - Arthritis [Not Recovered/Not Resolved]
  - Wrist fracture [Unknown]
  - Intervertebral disc protrusion [Recovered/Resolved]
  - Back pain [Recovering/Resolving]

NARRATIVE: CASE EVENT DATE: 20221126
